FAERS Safety Report 8076513-0 (Version None)
Quarter: 2012Q1

REPORT INFORMATION
  Report Type: 
  Country: None (occurrence: None)
  Receive Date: 20120127
  Receipt Date: 20120119
  Transmission Date: 20120608
  Serious: Yes (Other)
  Sender: FDA-Public Use
  Company Number: US-PFIZER INC-2011008910

PATIENT
  Sex: Male
  Weight: 74.83 kg

DRUGS (4)
  1. DILANTIN [Suspect]
     Indication: CONVULSION
     Dosage: 500 MG, UNK
     Dates: start: 19980101
  2. DILANTIN [Suspect]
     Dosage: 50 MG
  3. DILANTIN [Suspect]
     Indication: EPILEPSY
     Dosage: UNK
     Route: 048
     Dates: start: 19980101
  4. PHENYTEK [Suspect]
     Indication: EPILEPSY
     Dosage: 500 MG, 1X/DAY
     Route: 048
     Dates: start: 19980101

REACTIONS (11)
  - CONVULSION [None]
  - AMNESIA [None]
  - DIZZINESS [None]
  - COORDINATION ABNORMAL [None]
  - FATIGUE [None]
  - BACK PAIN [None]
  - LOSS OF CONSCIOUSNESS [None]
  - DYSPNOEA [None]
  - BALANCE DISORDER [None]
  - DRUG LEVEL FLUCTUATING [None]
  - PAIN IN EXTREMITY [None]
